FAERS Safety Report 9964131 (Version 2)
Quarter: 2014Q1

REPORT INFORMATION
  Report Type: Spontaneous
  Country: GB (occurrence: GB)
  Receive Date: 20140305
  Receipt Date: 20140328
  Transmission Date: 20141002
  Serious: Yes (Death, Hospitalization)
  Sender: FDA-Public Use
  Company Number: GB-CELGENEUS-167-21660-14023171

PATIENT
  Age: 42 Year
  Sex: Female

DRUGS (5)
  1. ABRAXANE [Suspect]
     Indication: BREAST CANCER METASTATIC
     Dosage: 430 MILLIGRAM
     Route: 041
     Dates: start: 20140207
  2. SODIUM CHLORIDE [Concomitant]
     Indication: BREAST CANCER
     Route: 065
     Dates: start: 20140207
  3. DOMPERIDONE [Concomitant]
     Indication: ANTIEMETIC SUPPORTIVE CARE
     Dosage: 30 MILLIGRAM
     Route: 048
     Dates: start: 20140207
  4. PALOXI [Concomitant]
     Indication: ANTIEMETIC SUPPORTIVE CARE
     Dosage: 250 MILLIGRAM
     Route: 041
     Dates: start: 20140207, end: 20140207
  5. NEULASTA [Concomitant]
     Indication: PROPHYLAXIS
     Dosage: 6 MILLIGRAM
     Route: 058
     Dates: start: 20140208, end: 20140208

REACTIONS (6)
  - Renal failure [Fatal]
  - Breast cancer metastatic [Fatal]
  - Malaise [Unknown]
  - Pyrexia [Unknown]
  - Oropharyngeal pain [Unknown]
  - Pain in extremity [Unknown]
